FAERS Safety Report 19443212 (Version 1)
Quarter: 2021Q2

REPORT INFORMATION
  Report Type: Spontaneous
  Country: US (occurrence: US)
  Receive Date: 20210621
  Receipt Date: 20210621
  Transmission Date: 20210717
  Serious: Yes (Disabling, Other)
  Sender: FDA-Public Use
  Company Number: US-SA-2021SA197087

PATIENT
  Age: 71 Year
  Sex: Female

DRUGS (1)
  1. LANTUS SOLOSTAR [Suspect]
     Active Substance: INSULIN GLARGINE
     Indication: TYPE 2 DIABETES MELLITUS
     Dosage: 40 IU, QD
     Route: 065
     Dates: start: 2001

REACTIONS (8)
  - Arthropathy [Unknown]
  - Product storage error [Unknown]
  - Blindness [Recovered/Resolved]
  - Fall [Unknown]
  - Cerebrovascular accident [Recovered/Resolved]
  - Balance disorder [Unknown]
  - Cerebrovascular accident [Unknown]
  - Paraesthesia [Unknown]

NARRATIVE: CASE EVENT DATE: 2004
